FAERS Safety Report 4519076-6 (Version None)
Quarter: 2004Q4

REPORT INFORMATION
  Report Type: 
  Country: None (occurrence: None)
  Receive Date: 20041206
  Receipt Date: 20041125
  Transmission Date: 20050328
  Serious: Yes (Other)
  Sender: FDA-Public Use
  Company Number: PHBS2004CA15933

PATIENT
  Sex: 0

DRUGS (1)
  1. TEGRETOL [Suspect]

REACTIONS (1)
  - GASTRIC ULCER [None]
